FAERS Safety Report 15609831 (Version 1)
Quarter: 2018Q4

REPORT INFORMATION
  Report Type: Other
  Country: NL (occurrence: NL)
  Receive Date: 20181113
  Receipt Date: 20181113
  Transmission Date: 20190205
  Serious: Yes (Other)
  Sender: FDA-Public Use
  Company Number: NL-CELLTRION INC.-2018NL023635

PATIENT

DRUGS (2)
  1. REMSIMA [Suspect]
     Active Substance: INFLIXIMAB
     Indication: CROHN^S DISEASE
     Dosage: 1 DF, 8 WEEK (10MG/KG 1X/8 WEKEN)
     Route: 065
     Dates: start: 201712, end: 201712
  2. REMSIMA [Suspect]
     Active Substance: INFLIXIMAB
     Dosage: 1 DF, 8 WEEK (10MG/KG 1X/8 WEKEN)
     Route: 065
     Dates: start: 201810, end: 201810

REACTIONS (1)
  - Small cell carcinoma [Not Recovered/Not Resolved]

NARRATIVE: CASE EVENT DATE: 201810
